FAERS Safety Report 7858164-3 (Version None)
Quarter: 2011Q4

REPORT INFORMATION
  Report Type: 
  Country: None (occurrence: None)
  Receive Date: 20111027
  Receipt Date: 20111024
  Transmission Date: 20120403
  Serious: Yes (Hospitalization)
  Sender: FDA-Public Use
  Company Number: IE-AMGEN-IRLCT2011055100

PATIENT
  Age: 33 Year
  Sex: Female

DRUGS (5)
  1. IRINOTECAN HCL [Suspect]
     Dosage: 180 MG/M2, Q2WK
     Route: 042
     Dates: start: 20110926, end: 20111010
  2. LEUCOVORIN CALCIUM [Concomitant]
     Dosage: 400 MG/M2, Q2WK
     Route: 042
     Dates: start: 20110926, end: 20111010
  3. FLUOROURACIL [Suspect]
     Dosage: UNK UNK, Q2WK
     Route: 042
     Dates: start: 20110926, end: 20111012
  4. AVASTIN [Suspect]
     Dosage: 5 MG/KG, Q2WK
     Route: 042
     Dates: start: 20110926, end: 20111010
  5. PLACEBO [Suspect]
     Indication: COLORECTAL CANCER METASTATIC
     Dosage: 6 MG, Q2WK
     Route: 058
     Dates: start: 20110929

REACTIONS (1)
  - NEUTROPENIC SEPSIS [None]
